FAERS Safety Report 18334989 (Version 1)
Quarter: 2020Q4

REPORT INFORMATION
  Report Type: Spontaneous
  Country: US (occurrence: US)
  Receive Date: 20201001
  Receipt Date: 20201001
  Transmission Date: 20210113
  Serious: Yes (Hospitalization, Other)
  Sender: FDA-Public Use
  Company Number: US-HIKMA PHARMACEUTICALS USA INC.-US-H14001-20-04490

PATIENT
  Age: 17 Year
  Sex: Male
  Weight: 63.1 kg

DRUGS (8)
  1. PREDNISONE. [Suspect]
     Active Substance: PREDNISONE
     Indication: ACUTE LYMPHOCYTIC LEUKAEMIA
     Dosage: MC1 D1-5, 29-33
     Route: 048
     Dates: start: 20200714
  2. MERCAPTOPURINE. [Suspect]
     Active Substance: MERCAPTOPURINE
     Indication: ACUTE LYMPHOCYTIC LEUKAEMIA
     Dosage: MC1 D1-40
     Route: 048
     Dates: start: 20200714, end: 20200821
  3. VINCRISTINE [Suspect]
     Active Substance: VINCRISTINE
     Indication: ACUTE LYMPHOCYTIC LEUKAEMIA
     Route: 042
     Dates: start: 20200714
  4. INCB018424 [Suspect]
     Active Substance: RUXOLITINIB
     Dosage: MC1 D1-14, 29-40
     Route: 048
     Dates: start: 20200714
  5. INCB018424 [Suspect]
     Active Substance: RUXOLITINIB
     Indication: ACUTE LYMPHOCYTIC LEUKAEMIA
     Dosage: IM1 D1-14, 29-42
     Route: 048
     Dates: start: 20190802, end: 20190925
  6. METHOTREXATE. [Suspect]
     Active Substance: METHOTREXATE
     Indication: ACUTE LYMPHOCYTIC LEUKAEMIA
     Dosage: UNKNOWN
     Route: 037
     Dates: start: 20200714
  7. METHOTREXATE. [Suspect]
     Active Substance: METHOTREXATE
     Indication: ACUTE LYMPHOCYTIC LEUKAEMIA
     Dosage: MC D8, 15, 22, 36
     Route: 048
     Dates: start: 20200721
  8. INCB018424 [Suspect]
     Active Substance: RUXOLITINIB
     Dosage: C D1-14, 29-42; DI D1-14
     Route: 048
     Dates: start: 20191030, end: 20200709

REACTIONS (4)
  - Gastroenteritis [Unknown]
  - Neutropenia [Unknown]
  - Diarrhoea [Unknown]
  - Febrile neutropenia [Not Recovered/Not Resolved]

NARRATIVE: CASE EVENT DATE: 20200821
